FAERS Safety Report 6857977-4 (Version None)
Quarter: 2010Q2

REPORT INFORMATION
  Report Type: 
  Country: None (occurrence: None)
  Receive Date: 20100630
  Receipt Date: 20100325
  Transmission Date: 20101027
  Serious: No
  Sender: FDA-Public Use
  Company Number: 1000012744

PATIENT
  Sex: Male

DRUGS (2)
  1. NEBIVOLOL HCL [Suspect]
     Indication: HYPERTENSION
     Dosage: (1 IN 1 D), ORAL
     Route: 048
     Dates: start: 20091101
  2. ATORVASTATIN CALCIUM [Suspect]
     Dosage: ORAL
     Route: 048
     Dates: start: 20091101

REACTIONS (1)
  - ERECTILE DYSFUNCTION [None]
